FAERS Safety Report 10559673 (Version 1)
Quarter: 2014Q4

REPORT INFORMATION
  Report Type: Spontaneous
  Country: US (occurrence: None)
  Receive Date: 20141031
  Receipt Date: 20141031
  Transmission Date: 20150529
  Serious: Yes (Disabling)
  Sender: FDA-Public Use
  Company Number: None

PATIENT
  Age: 37 Year
  Sex: Female
  Weight: 63.5 kg

DRUGS (5)
  1. ALPRAZOLAM. [Suspect]
     Active Substance: ALPRAZOLAM
     Indication: ANXIETY
     Dates: start: 20140704
  2. ALPRAZOLAM. [Suspect]
     Active Substance: ALPRAZOLAM
     Indication: INFERTILITY
     Dates: start: 20140704
  3. OLANZAPINE. [Suspect]
     Active Substance: OLANZAPINE
     Indication: DEPRESSED MOOD
     Route: 048
     Dates: end: 20141030
  4. ALPRAZOLAM. [Suspect]
     Active Substance: ALPRAZOLAM
     Indication: HAEMORRHAGE
     Dates: start: 20140704
  5. OLANZAPINE. [Suspect]
     Active Substance: OLANZAPINE
     Indication: ANXIETY
     Route: 048
     Dates: end: 20141030

REACTIONS (37)
  - Menorrhagia [None]
  - Uterine cervical pain [None]
  - Anorgasmia [None]
  - Anxiety [None]
  - Memory impairment [None]
  - Disturbance in attention [None]
  - Fibrosis [None]
  - Seizure [None]
  - Infertility female [None]
  - Anger [None]
  - Tic [None]
  - Myopia [None]
  - Chest pain [None]
  - Weight increased [None]
  - Cervix carcinoma [None]
  - Depression [None]
  - Insomnia [None]
  - Fungal infection [None]
  - Nightmare [None]
  - Parkinsonism [None]
  - Vision blurred [None]
  - Premature menopause [None]
  - Urinary tract infection [None]
  - Abdominal pain [None]
  - Ulcer [None]
  - Gastritis [None]
  - Dysmenorrhoea [None]
  - Diabetes mellitus [None]
  - Hyperglycaemia [None]
  - Constipation [None]
  - Gastric cancer [None]
  - Dyskinesia [None]
  - Dyspnoea [None]
  - Amenorrhoea [None]
  - Mood swings [None]
  - Tachycardia [None]
  - Body temperature abnormal [None]

NARRATIVE: CASE EVENT DATE: 20141009
